FAERS Safety Report 7837888-8 (Version None)
Quarter: 2011Q4

REPORT INFORMATION
  Report Type: 
  Country: None (occurrence: None)
  Receive Date: 20111024
  Receipt Date: 20111013
  Transmission Date: 20120403
  Serious: Yes (Other)
  Sender: FDA-Public Use
  Company Number: US-ASTRAZENECA-2011SE62029

PATIENT
  Age: 31 Year
  Sex: Male

DRUGS (1)
  1. NEXIUM [Suspect]
     Route: 048

REACTIONS (3)
  - SOMNOLENCE [None]
  - ROAD TRAFFIC ACCIDENT [None]
  - CERVICAL VERTEBRAL FRACTURE [None]
